FAERS Safety Report 6257912-6 (Version None)
Quarter: 2009Q3

REPORT INFORMATION
  Report Type: 
  Country: None (occurrence: None)
  Receive Date: 20090707
  Receipt Date: 20090624
  Transmission Date: 20100115
  Serious: Yes (Other)
  Sender: FDA-Public Use
  Company Number: GB-PFIZER INC-2009224584

PATIENT
  Age: 52 Year

DRUGS (1)
  1. CHAMPIX [Suspect]
     Dosage: UNKNOWN
     Dates: end: 20080214

REACTIONS (3)
  - DEPRESSION [None]
  - INSOMNIA [None]
  - PARANOIA [None]
